FAERS Safety Report 14551659 (Version 1)
Quarter: 2018Q1

REPORT INFORMATION
  Report Type: Spontaneous
  Country: US (occurrence: US)
  Receive Date: 20180220
  Receipt Date: 20180220
  Transmission Date: 20180509
  Serious: No
  Sender: FDA-Public Use
  Company Number: US-TEVA-817354USA

PATIENT
  Sex: Male

DRUGS (1)
  1. GLYBURIDE AND METFORMIN [Suspect]
     Active Substance: GLYBURIDE\METFORMIN HYDROCHLORIDE
     Indication: TYPE 2 DIABETES MELLITUS
     Dosage: 5/500 MG
     Dates: start: 2017, end: 2017

REACTIONS (5)
  - Feeling abnormal [Unknown]
  - Blood glucose increased [Unknown]
  - Drug ineffective [Unknown]
  - Abdominal discomfort [Unknown]
  - Adverse event [Unknown]

NARRATIVE: CASE EVENT DATE: 2017
